FAERS Safety Report 5717568-5 (Version None)
Quarter: 2008Q2

REPORT INFORMATION
  Report Type: 
  Country: None (occurrence: None)
  Receive Date: 20080425
  Receipt Date: 20080425
  Transmission Date: 20081010
  Serious: Yes (Death)
  Sender: FDA-Public Use
  Company Number: None

PATIENT
  Sex: Female

DRUGS (2)
  1. HEPARIN [Suspect]
     Indication: ANTICOAGULANT THERAPY
     Dates: start: 20000101, end: 20080417
  2. HEPARIN [Suspect]
     Indication: DIALYSIS
     Dates: start: 20000101, end: 20080417

REACTIONS (2)
  - ILL-DEFINED DISORDER [None]
  - RENAL DISORDER [None]
